FAERS Safety Report 22099305 (Version 1)
Quarter: 2023Q1

REPORT INFORMATION
  Report Type: Spontaneous
  Country: US (occurrence: None)
  Receive Date: 20230315
  Receipt Date: 20230315
  Transmission Date: 20230418
  Serious: No
  Sender: FDA-Public Use
  Company Number: None

PATIENT
  Sex: Female

DRUGS (21)
  1. AMBRISENTAN [Suspect]
     Active Substance: AMBRISENTAN
     Indication: Pulmonary arterial hypertension
     Dosage: FREQUENCY : DAILY;?
     Route: 048
  2. TADALAFIL [Concomitant]
     Active Substance: TADALAFIL
  3. COLACE [Concomitant]
     Active Substance: DOCUSATE SODIUM
  4. ZOFRAN [Concomitant]
     Active Substance: ONDANSETRON HYDROCHLORIDE
  5. ROPINIROLE HYDROCHLORIDE [Concomitant]
     Active Substance: ROPINIROLE HYDROCHLORIDE
  6. LIDOCAINE [Concomitant]
     Active Substance: LIDOCAINE
  7. ALBUTEROL SULFATE [Concomitant]
     Active Substance: ALBUTEROL SULFATE
  8. VITAMIN B12 [Concomitant]
     Active Substance: CYANOCOBALAMIN
  9. HYDROCODONE BITARTRATE/AC [Concomitant]
  10. HYDROMORPHONE HCL [Concomitant]
     Active Substance: HYDROMORPHONE HYDROCHLORIDE
  11. ZOLOFT [Concomitant]
     Active Substance: SERTRALINE HYDROCHLORIDE
  12. MORPHINE SULFATE [Concomitant]
     Active Substance: MORPHINE SULFATE
  13. ACTEMRA [Concomitant]
     Active Substance: TOCILIZUMAB
  14. LORATADINE [Concomitant]
     Active Substance: LORATADINE
  15. ALYQ [Concomitant]
     Active Substance: TADALAFIL
  16. HYDROXYZINE HYDROCHLORIDE		 TOPAMAX [Concomitant]
  17. TOPAMAX [Concomitant]
     Active Substance: TOPIRAMATE
  18. ZANAFLEX [Concomitant]
     Active Substance: TIZANIDINE HYDROCHLORIDE
  19. PROAIR HFA	 |  XANAX [Concomitant]
  20. BIOTIN	| SEROQUEL|  SCOPOLAMINE [Concomitant]
  21. REQUIP |   REMODULIN	|   IMODIUM A-D|  TORSEMIDE [Concomitant]

REACTIONS (8)
  - Cardiac failure congestive [None]
  - Hospice care [None]
  - Palliative care [None]
  - Left ventricular failure [None]
  - Coronavirus infection [None]
  - Pneumonia [None]
  - Diarrhoea [None]
  - Impaired gastric emptying [None]
